FAERS Safety Report 9000027 (Version 1)
Quarter: 2013Q1

REPORT INFORMATION
  Report Type: Spontaneous
  Country: US (occurrence: US)
  Receive Date: 20130102
  Receipt Date: 20130102
  Transmission Date: 20140127
  Serious: Yes (Other)
  Sender: FDA-Public Use
  Company Number: US-PFIZER INC-2012331832

PATIENT
  Age: 73 Year
  Sex: Female
  Weight: 58.96 kg

DRUGS (3)
  1. DETROL LA [Suspect]
     Indication: URINARY INCONTINENCE
     Dosage: 4 MG, 1X/DAY
     Route: 048
     Dates: end: 2012
  2. DETROL LA [Suspect]
     Indication: POLYURIA
     Dosage: 4 MG, 1X/DAY
     Route: 048
     Dates: start: 2012
  3. ATORVASTATIN [Concomitant]
     Indication: BLOOD CHOLESTEROL INCREASED
     Dosage: UNK

REACTIONS (3)
  - Bladder disorder [Unknown]
  - Eye disorder [Unknown]
  - Polyuria [Unknown]
